FAERS Safety Report 8536975-9 (Version None)
Quarter: 2012Q3

REPORT INFORMATION
  Report Type: 
  Country: None (occurrence: None)
  Receive Date: 20120725
  Receipt Date: 20120718
  Transmission Date: 20120928
  Serious: Yes (Hospitalization)
  Sender: FDA-Public Use
  Company Number: US-TEVA-341705USA

PATIENT
  Sex: Male

DRUGS (5)
  1. AMLODIPINE [Concomitant]
  2. CLONIDINE [Concomitant]
  3. COPAXONE [Suspect]
     Indication: MULTIPLE SCLEROSIS
     Route: 058
     Dates: start: 20110920
  4. MIRTAZAPINE [Concomitant]
  5. LISINOPRIL [Concomitant]

REACTIONS (4)
  - CELLULITIS [None]
  - GOUTY ARTHRITIS [None]
  - PAIN [None]
  - MUSCLE RUPTURE [None]
